FAERS Safety Report 19747495 (Version 1)
Quarter: 2021Q3

REPORT INFORMATION
  Report Type: Spontaneous
  Country: US (occurrence: US)
  Receive Date: 20210825
  Receipt Date: 20210825
  Transmission Date: 20211014
  Serious: No
  Sender: FDA-Public Use
  Company Number: US-SUNOVION-2021SUN002877

PATIENT
  Sex: Female

DRUGS (2)
  1. LUNESTA [Suspect]
     Active Substance: ESZOPICLONE
     Dosage: 1 MG
     Route: 048
  2. LUNESTA [Suspect]
     Active Substance: ESZOPICLONE
     Dosage: 2 MG
     Route: 048

REACTIONS (12)
  - Pain [Unknown]
  - Dysgeusia [Unknown]
  - Paraesthesia [Unknown]
  - Therapeutic response shortened [Unknown]
  - Chest pain [Unknown]
  - Dyspepsia [Unknown]
  - Insomnia [Unknown]
  - Nausea [Unknown]
  - Somnolence [Unknown]
  - Anxiety [Unknown]
  - Feeling abnormal [Unknown]
  - Withdrawal syndrome [Unknown]
